FAERS Safety Report 8431863-0 (Version None)
Quarter: 2012Q2

REPORT INFORMATION
  Report Type: 
  Country: None (occurrence: None)
  Receive Date: 20120606
  Receipt Date: 20120531
  Transmission Date: 20120825
  Serious: Yes (Other)
  Sender: FDA-Public Use
  Company Number: AUR-APL-2012-02372

PATIENT
  Age: 34 Year
  Sex: Female

DRUGS (1)
  1. ZOLPIDEM [Suspect]
     Indication: INSOMNIA

REACTIONS (5)
  - ROAD TRAFFIC ACCIDENT [None]
  - ANXIETY [None]
  - LEGAL PROBLEM [None]
  - SOMNAMBULISM [None]
  - PANIC REACTION [None]
